FAERS Safety Report 14613429 (Version 3)
Quarter: 2018Q2

REPORT INFORMATION
  Report Type: Spontaneous
  Country: US (occurrence: US)
  Receive Date: 20180308
  Receipt Date: 20180523
  Transmission Date: 20180711
  Serious: Yes (Other)
  Sender: FDA-Public Use
  Company Number: US-SAOL THERAPEUTICS-2018SAO00305

PATIENT
  Sex: Male

DRUGS (1)
  1. BACLOFEN. [Suspect]
     Active Substance: BACLOFEN
     Indication: MUSCLE SPASTICITY
     Dosage: 575 ?G, \DAY
     Route: 037

REACTIONS (8)
  - Implant site calcification [Unknown]
  - Impaired healing [Not Recovered/Not Resolved]
  - Staphylococcal infection [Unknown]
  - Implant site erosion [Unknown]
  - Implant site infection [Unknown]
  - Central nervous system infection [Unknown]
  - Device breakage [Recovered/Resolved]
  - Implant site scar [Unknown]

NARRATIVE: CASE EVENT DATE: 2005
